FAERS Safety Report 6626207-0 (Version None)
Quarter: 2010Q1

REPORT INFORMATION
  Report Type: 
  Country: None (occurrence: None)
  Receive Date: 20100310
  Receipt Date: 20100224
  Transmission Date: 20100710
  Serious: Yes (Hospitalization)
  Sender: FDA-Public Use
  Company Number: US-ELI_LILLY_AND_COMPANY-US201002005473

PATIENT
  Sex: Male
  Weight: 106.12 kg

DRUGS (5)
  1. EXENATIDE [Suspect]
     Indication: TYPE 2 DIABETES MELLITUS
     Dates: start: 20080602
  2. LOTREL [Concomitant]
     Indication: HYPERTENSION
     Dosage: UNK, UNK
     Dates: start: 20070408, end: 20091225
  3. JANUMET [Concomitant]
     Indication: DIABETES MELLITUS
     Dates: start: 20070427, end: 20091225
  4. SELENIUM [Concomitant]
     Dates: start: 20090824
  5. LIPITOR [Concomitant]
     Indication: HYPERLIPIDAEMIA
     Dates: start: 20070408, end: 20091225

REACTIONS (1)
  - ISCHAEMIC CARDIOMYOPATHY [None]
